FAERS Safety Report 16795142 (Version 2)
Quarter: 2019Q4

REPORT INFORMATION
  Report Type: Spontaneous
  Country: US (occurrence: US)
  Receive Date: 20190911
  Receipt Date: 20191012
  Transmission Date: 20200122
  Serious: No
  Sender: FDA-Public Use
  Company Number: US-009507513-1908USA008673

PATIENT
  Age: 30 Year
  Sex: Female
  Weight: 128.8 kg

DRUGS (4)
  1. NEXPLANON [Suspect]
     Active Substance: ETONOGESTREL
     Dosage: CONTINUOUS
     Route: 058
     Dates: start: 20190812
  2. NEXPLANON [Suspect]
     Active Substance: ETONOGESTREL
     Indication: CONTRACEPTION
     Dosage: 1 IMPLANT
     Dates: end: 201806
  3. NEXPLANON [Suspect]
     Active Substance: ETONOGESTREL
     Dosage: 1 ROD EVERY 3 YEARS
     Route: 059
     Dates: start: 20190812, end: 20190812
  4. NEXPLANON [Suspect]
     Active Substance: ETONOGESTREL
     Dosage: 1 ROD EVERY 3 YEARS
     Route: 059
     Dates: start: 20190812

REACTIONS (7)
  - Device difficult to use [Recovered/Resolved]
  - Product quality issue [Unknown]
  - Complication of device insertion [Recovered/Resolved]
  - Device expulsion [Recovered/Resolved]
  - Complication of device removal [Recovered/Resolved]
  - Device deployment issue [Recovered/Resolved]
  - No adverse event [Unknown]

NARRATIVE: CASE EVENT DATE: 201806
